FAERS Safety Report 12818154 (Version 1)
Quarter: 2016Q4

REPORT INFORMATION
  Report Type: Report from Study
  Country: KR (occurrence: KR)
  Receive Date: 20161005
  Receipt Date: 20161005
  Transmission Date: 20170207
  Serious: Yes (Death, Hospitalization)
  Sender: FDA-Public Use
  Company Number: KR-B.I. PHARMACEUTICALS,INC./RIDGEFIELD-2016-BI-29536RK

PATIENT
  Age: 67 Year
  Sex: Male
  Weight: 68 kg

DRUGS (1)
  1. BIBF 1120 [Suspect]
     Active Substance: NINTEDANIB
     Indication: IDIOPATHIC PULMONARY FIBROSIS
     Route: 048
     Dates: start: 20150612, end: 20160506

REACTIONS (2)
  - Delirium [Not Recovered/Not Resolved]
  - Small cell lung cancer [Fatal]

NARRATIVE: CASE EVENT DATE: 20160503
